FAERS Safety Report 4799721-0 (Version None)
Quarter: 2005Q4

REPORT INFORMATION
  Report Type: 
  Country: None (occurrence: None)
  Receive Date: 20051006
  Receipt Date: 20051006
  Transmission Date: 20060501
  Serious: Yes (Hospitalization)
  Sender: FDA-Public Use
  Company Number: None

PATIENT
  Age: 68 Year
  Sex: Female
  Weight: 74.6 kg

DRUGS (7)
  1. DAUNORUBICIN HCL [Suspect]
     Indication: ACUTE MYELOID LEUKAEMIA
     Dosage: 80MG IV DAILY
     Route: 042
  2. ACETAMINOPHEN [Concomitant]
  3. ALLOPURINOL [Concomitant]
  4. NORMAL SALINE [Concomitant]
  5. POTASSIUM CHLORIDE [Concomitant]
  6. DEXAMETHASONE [Concomitant]
  7. ONDANSETRON [Concomitant]

REACTIONS (4)
  - ARRHYTHMIA SUPRAVENTRICULAR [None]
  - ELECTROCARDIOGRAM ABNORMAL [None]
  - HEART RATE IRREGULAR [None]
  - SINUS ARRHYTHMIA [None]
